FAERS Safety Report 19310131 (Version 1)
Quarter: 2021Q2

REPORT INFORMATION
  Report Type: Spontaneous
  Country: FR (occurrence: FR)
  Receive Date: 20210526
  Receipt Date: 20210526
  Transmission Date: 20210717
  Serious: Yes (Life-Threatening, Hospitalization, Other)
  Sender: FDA-Public Use
  Company Number: FR-PURDUE-USA-2021-0264493

PATIENT
  Age: 52 Year
  Sex: Female

DRUGS (1)
  1. OXYCONTIN [Suspect]
     Active Substance: OXYCODONE HYDROCHLORIDE
     Indication: PAIN
     Dosage: UNK
     Route: 048
     Dates: start: 2008, end: 2020

REACTIONS (9)
  - Drug diversion [Recovered/Resolved]
  - Drug withdrawal syndrome [Recovered/Resolved]
  - Drug abuse [Recovered/Resolved]
  - Suicidal ideation [Recovered/Resolved]
  - Drug dependence [Recovered/Resolved]
  - Road traffic accident [Recovered/Resolved]
  - Suicide attempt [Recovered/Resolved]
  - Paraesthesia [Recovered/Resolved]
  - Burning sensation [Recovered/Resolved]

NARRATIVE: CASE EVENT DATE: 2008
